FAERS Safety Report 7564223-5 (Version None)
Quarter: 2011Q2

REPORT INFORMATION
  Report Type: 
  Country: None (occurrence: None)
  Receive Date: 20110622
  Receipt Date: 20110608
  Transmission Date: 20111010
  Serious: Yes (Other)
  Sender: FDA-Public Use
  Company Number: PHHY2009CA23254

PATIENT
  Sex: Female

DRUGS (2)
  1. ZOLEDRONIC ACID [Suspect]
     Dosage: 5 MG, UNK
     Route: 042
     Dates: start: 20100607
  2. ZOLEDRONIC ACID [Suspect]
     Indication: OSTEOPOROSIS
     Dosage: 5 MG
     Dates: start: 20090603

REACTIONS (8)
  - SKIN WRINKLING [None]
  - MUSCULOSKELETAL PAIN [None]
  - ARTHRALGIA [None]
  - SPINAL OSTEOARTHRITIS [None]
  - HEADACHE [None]
  - PAIN IN JAW [None]
  - PAIN [None]
  - SKIN DISORDER [None]
